FAERS Safety Report 23424354 (Version 2)
Quarter: 2024Q1

REPORT INFORMATION
  Report Type: Spontaneous
  Country: US (occurrence: US)
  Receive Date: 20240120
  Receipt Date: 20240129
  Transmission Date: 20240409
  Serious: Yes (Other)
  Sender: FDA-Public Use
  Company Number: US-Accord-390971

PATIENT
  Age: 65 Year
  Sex: Female

DRUGS (2)
  1. DOCETAXEL [Suspect]
     Active Substance: DOCETAXEL\DOCETAXEL ANHYDROUS
     Indication: Breast cancer
     Dates: start: 20220128, end: 20220401
  2. CYTOXAN [Suspect]
     Active Substance: CYCLOPHOSPHAMIDE
     Indication: Breast cancer
     Dates: start: 20220128, end: 20220401

REACTIONS (4)
  - Dacryostenosis acquired [Not Recovered/Not Resolved]
  - Cataract [Not Recovered/Not Resolved]
  - Dry eye [Recovered/Resolved]
  - Rosacea [Not Recovered/Not Resolved]

NARRATIVE: CASE EVENT DATE: 20220101
